FAERS Safety Report 11383447 (Version 3)
Quarter: 2015Q4

REPORT INFORMATION
  Report Type: Report from Study
  Country: GB (occurrence: GB)
  Receive Date: 20150814
  Receipt Date: 20151120
  Transmission Date: 20160304
  Serious: Yes (Hospitalization, Other)
  Sender: FDA-Public Use
  Company Number: PHFR2014GB008843

PATIENT
  Age: 65 Year
  Sex: Male
  Weight: 84.5 kg

DRUGS (11)
  1. ALLOPURINOL. [Concomitant]
     Active Substance: ALLOPURINOL
     Indication: GOUT
     Dosage: 300 MG, UNK
     Route: 048
     Dates: start: 200906
  2. ATORVASTATIN [Concomitant]
     Active Substance: ATORVASTATIN
     Indication: HYPERCHOLESTEROLAEMIA
     Dosage: 10 MG, UNK
     Route: 048
     Dates: start: 2013
  3. RAMIPRIL. [Concomitant]
     Active Substance: RAMIPRIL
     Indication: HYPERTENSION
     Dosage: UNK UNK, QD
     Route: 048
     Dates: start: 201002, end: 20141204
  4. MERIVA [Concomitant]
     Indication: PLASMA PROTEIN METABOLISM DISORDER
     Dosage: 2 G, UNK
     Route: 048
  5. WARFARIN [Concomitant]
     Active Substance: WARFARIN
     Indication: DEEP VEIN THROMBOSIS
     Dosage: UNK
     Route: 048
     Dates: start: 201303
  6. GLICLAZIDE [Concomitant]
     Active Substance: GLICLAZIDE
     Indication: TYPE 2 DIABETES MELLITUS
     Dosage: 200 MG, UNK
     Route: 048
     Dates: start: 201303
  7. METFORMIN [Concomitant]
     Active Substance: METFORMIN HYDROCHLORIDE
     Indication: TYPE 2 DIABETES MELLITUS
     Dosage: 2 G, UNK
     Route: 048
     Dates: start: 2008
  8. PHENOXYMETHYL PENICILLIN [Concomitant]
     Active Substance: PENICILLIN V
     Indication: SPLENECTOMY
     Dosage: 1 G, UNK
     Route: 048
     Dates: start: 200506
  9. OMEPRAZOLE. [Concomitant]
     Active Substance: OMEPRAZOLE
     Indication: GASTRIC ULCER
     Dosage: 20 MG, UNK
     Route: 048
     Dates: start: 200901
  10. AFINITOR [Suspect]
     Active Substance: EVEROLIMUS
     Indication: PANCREATIC NEUROENDOCRINE TUMOUR
     Dosage: 10 MG, UNK
     Route: 048
     Dates: start: 20140919
  11. AFINITOR [Suspect]
     Active Substance: EVEROLIMUS
     Dosage: 5 MG, UNK
     Route: 048
     Dates: start: 20141107, end: 20141205

REACTIONS (13)
  - Fatigue [Recovered/Resolved]
  - Blood glucose increased [Unknown]
  - Second primary malignancy [Not Recovered/Not Resolved]
  - Dyspnoea [Not Recovered/Not Resolved]
  - Diarrhoea [Recovered/Resolved]
  - Palpitations [Not Recovered/Not Resolved]
  - Blood calcium increased [Unknown]
  - Waldenstrom^s macroglobulinaemia [Not Recovered/Not Resolved]
  - Blood creatinine increased [Recovered/Resolved]
  - Pruritus [Not Recovered/Not Resolved]
  - Fatigue [Not Recovered/Not Resolved]
  - Rash [Not Recovered/Not Resolved]
  - Upper respiratory tract infection [Recovered/Resolved]

NARRATIVE: CASE EVENT DATE: 20140922
